FAERS Safety Report 15083641 (Version 2)
Quarter: 2018Q3

REPORT INFORMATION
  Report Type: Report from Study
  Country: US (occurrence: US)
  Receive Date: 20180628
  Receipt Date: 20180927
  Transmission Date: 20181010
  Serious: No
  Sender: FDA-Public Use
  Company Number: US-CLOVIS ONCOLOGY-CLO-2018-000389

PATIENT
  Age: 68 Year
  Sex: Female

DRUGS (1)
  1. RUBRACA [Suspect]
     Active Substance: RUCAPARIB CAMSYLATE
     Indication: OVARIAN CANCER
     Dosage: 600 MG, BID
     Route: 048
     Dates: start: 20180406, end: 201805

REACTIONS (9)
  - Blood iron decreased [Unknown]
  - Abdominal discomfort [Unknown]
  - Drug dose omission [Unknown]
  - Dysgeusia [Unknown]
  - Chills [Unknown]
  - Vomiting [Recovered/Resolved]
  - Malignant neoplasm progression [Not Recovered/Not Resolved]
  - Abdominal distension [Unknown]
  - Therapy partial responder [Unknown]

NARRATIVE: CASE EVENT DATE: 201804
